FAERS Safety Report 14794522 (Version 1)
Quarter: 2018Q2

REPORT INFORMATION
  Report Type: Spontaneous
  Country: ES (occurrence: ES)
  Receive Date: 20180423
  Receipt Date: 20180423
  Transmission Date: 20180711
  Serious: Yes (Other)
  Sender: FDA-Public Use
  Company Number: ES-TEVA-2018-ES-882374

PATIENT
  Age: 49 Year
  Sex: Female
  Weight: 55 kg

DRUGS (5)
  1. RANITIDINA HIDROCLORURO (2CH) [Concomitant]
     Indication: CYSTADENOCARCINOMA OVARY
     Route: 042
     Dates: start: 20170718
  2. DEXAMETASONA FOSFATO SODIO (722FN) [Concomitant]
     Indication: CYSTADENOCARCINOMA OVARY
     Route: 042
     Dates: start: 20170718
  3. PACLITAXEL. [Suspect]
     Active Substance: PACLITAXEL
     Indication: CYSTADENOCARCINOMA OVARY
     Route: 042
     Dates: start: 20170718, end: 20170718
  4. DEXCLORFENIRAMINA MALEATO (724MA) [Concomitant]
     Indication: CYSTADENOCARCINOMA OVARY
     Route: 042
     Dates: start: 20170718
  5. ONDANSETRON HIDROCLORURO DIHIDRATO (2575CV) [Concomitant]
     Indication: CYSTADENOCARCINOMA OVARY
     Route: 042
     Dates: start: 20170718

REACTIONS (3)
  - Hypotension [Recovered/Resolved]
  - Infusion related reaction [Recovered/Resolved]
  - Oxygen saturation decreased [Recovered/Resolved]

NARRATIVE: CASE EVENT DATE: 20170718
